FAERS Safety Report 7532228-6 (Version None)
Quarter: 2011Q2

REPORT INFORMATION
  Report Type: 
  Country: None (occurrence: None)
  Receive Date: 20110608
  Receipt Date: 20110530
  Transmission Date: 20111010
  Serious: Yes (Other)
  Sender: FDA-Public Use
  Company Number: PHHY2011JP47016

PATIENT
  Age: 71 Year
  Sex: Male

DRUGS (5)
  1. LEUCOVORIN CALCIUM [Suspect]
     Dosage: 150 MG, UNK
     Dates: start: 20080701
  2. OXALIPLATIN [Suspect]
     Indication: METASTASES TO LIVER
     Dosage: 100 MG, UNK
     Dates: start: 20080701
  3. BEVACIZUMAB [Suspect]
     Indication: METASTASES TO LIVER
     Dosage: UNK
     Dates: start: 20080701
  4. FLUOROURACIL [Suspect]
     Indication: METASTASES TO LIVER
     Dosage: 500 MG, UNK
     Dates: start: 20080701
  5. FLUOROURACIL [Suspect]
     Dosage: 750 MG, UNK

REACTIONS (7)
  - INTERSTITIAL LUNG DISEASE [None]
  - PRURITUS [None]
  - RASH [None]
  - DYSPNOEA [None]
  - C-REACTIVE PROTEIN INCREASED [None]
  - EOSINOPHIL COUNT INCREASED [None]
  - PYREXIA [None]
